FAERS Safety Report 4875022-7 (Version None)
Quarter: 2006Q1

REPORT INFORMATION
  Report Type: 
  Country: None (occurrence: None)
  Receive Date: 20060105
  Receipt Date: 20051227
  Transmission Date: 20060701
  Serious: Yes (Other)
  Sender: FDA-Public Use
  Company Number: SUSI-2005-00949

PATIENT
  Age: 38 Year
  Sex: Female
  Weight: 61.2 kg

DRUGS (4)
  1. CARBATROL [Suspect]
     Indication: EPILEPSY
     Dosage: SEE IMAGE
     Dates: start: 20040101, end: 20050101
  2. CARBATROL [Suspect]
     Indication: EPILEPSY
     Dosage: SEE IMAGE
     Dates: start: 20001001, end: 20051201
  3. CARBATROL [Suspect]
     Indication: EPILEPSY
     Dosage: SEE IMAGE
     Dates: start: 20051201
  4. LYRICA [Concomitant]

REACTIONS (11)
  - CONVULSION [None]
  - DEPRESSION [None]
  - DIZZINESS [None]
  - DRY MOUTH [None]
  - DRY SKIN [None]
  - DYSKINESIA [None]
  - MEMORY IMPAIRMENT [None]
  - MUSCLE SPASMS [None]
  - SEXUAL DYSFUNCTION [None]
  - SOMNOLENCE [None]
  - VISION BLURRED [None]
